FAERS Safety Report 5059295-6 (Version None)
Quarter: 2006Q3

REPORT INFORMATION
  Report Type: 
  Country: None (occurrence: None)
  Receive Date: 20060724
  Receipt Date: 20060712
  Transmission Date: 20061208
  Serious: Yes (Other)
  Sender: FDA-Public Use
  Company Number: US-JNJFOC-20060603654

PATIENT
  Sex: Female
  Weight: 90.72 kg

DRUGS (19)
  1. REMICADE [Suspect]
  2. REMICADE [Suspect]
  3. REMICADE [Suspect]
  4. REMICADE [Suspect]
  5. REMICADE [Suspect]
  6. REMICADE [Suspect]
  7. REMICADE [Suspect]
  8. REMICADE [Suspect]
  9. REMICADE [Suspect]
     Indication: RHEUMATOID ARTHRITIS
  10. ARAVA [Concomitant]
  11. LANTUS [Concomitant]
  12. LANTUS [Concomitant]
  13. VICODIN [Concomitant]
  14. NOVALOG [Concomitant]
  15. MIRALAX [Concomitant]
  16. DURAGESIC-100 [Concomitant]
  17. NEXIUM [Concomitant]
  18. PAXIL [Concomitant]
  19. XANAX [Concomitant]

REACTIONS (1)
  - BLOOD ALKALINE PHOSPHATASE INCREASED [None]
